FAERS Safety Report 17567639 (Version 1)
Quarter: 2020Q1

REPORT INFORMATION
  Report Type: Spontaneous
  Country: FR (occurrence: FR)
  Receive Date: 20200320
  Receipt Date: 20200320
  Transmission Date: 20200409
  Serious: Yes (Hospitalization)
  Sender: FDA-Public Use
  Company Number: FR-BAYER-2020-045178

PATIENT
  Age: 46 Year
  Sex: Female

DRUGS (4)
  1. METRONIDAZOLE. [Suspect]
     Active Substance: METRONIDAZOLE
     Indication: DIARRHOEA HAEMORRHAGIC
     Dosage: 1.5 G, QD
  2. METRONIDAZOLE. [Suspect]
     Active Substance: METRONIDAZOLE
     Indication: ABDOMINAL PAIN
  3. CIFLOX [Suspect]
     Active Substance: CIPROFLOXACIN
     Indication: DIARRHOEA HAEMORRHAGIC
     Dosage: UNK
     Dates: start: 20190909
  4. CIFLOX [Suspect]
     Active Substance: CIPROFLOXACIN
     Indication: ABDOMINAL PAIN

REACTIONS (5)
  - Dehydration [Recovering/Resolving]
  - Frequent bowel movements [Recovering/Resolving]
  - Vomiting [Recovering/Resolving]
  - Clostridium difficile colitis [Recovering/Resolving]
  - Drug ineffective [None]
